FAERS Safety Report 4628239-0 (Version None)
Quarter: 2005Q2

REPORT INFORMATION
  Report Type: 
  Country: None (occurrence: None)
  Receive Date: 20050401
  Receipt Date: 20050321
  Transmission Date: 20051028
  Serious: Yes (Hospitalization, Other)
  Sender: FDA-Public Use
  Company Number: 213285

PATIENT
  Age: 13 Year
  Sex: Female
  Weight: 20.3 kg

DRUGS (1)
  1. NUTROPIN [Suspect]
     Indication: TURNER'S SYNDROME
     Dosage: 1.4 UNK, 6/WEEK, SUBCUTANEOUS
     Route: 058
     Dates: start: 19980101, end: 20050101

REACTIONS (5)
  - DIABETES MELLITUS INSULIN-DEPENDENT [None]
  - DIABETIC KETOACIDOSIS [None]
  - DIZZINESS [None]
  - POLYURIA [None]
  - WEIGHT DECREASED [None]
